FAERS Safety Report 8557395-7 (Version None)
Quarter: 2012Q3

REPORT INFORMATION
  Report Type: 
  Country: None (occurrence: None)
  Receive Date: 20120720
  Receipt Date: 20101123
  Transmission Date: 20120928
  Serious: Yes (Death, Other)
  Sender: FDA-Public Use
  Company Number: 012083

PATIENT
  Age: 7 Month

DRUGS (2)
  1. BUSULFEX [Suspect]
     Dosage: 1 MG/KG Q6HR, INTRAVENOUS
     Route: 042
  2. PHENYTOIN [Concomitant]

REACTIONS (7)
  - HYPOTENSION [None]
  - ACIDOSIS [None]
  - CONVULSION [None]
  - PNEUMONIA [None]
  - MULTI-ORGAN FAILURE [None]
  - RESPIRATORY SYNCYTIAL VIRUS INFECTION [None]
  - VENOOCCLUSIVE LIVER DISEASE [None]
